FAERS Safety Report 15156627 (Version 1)
Quarter: 2018Q3

REPORT INFORMATION
  Report Type: Spontaneous
  Country: IT (occurrence: IT)
  Receive Date: 20180717
  Receipt Date: 20180717
  Transmission Date: 20181010
  Serious: Yes (Hospitalization)
  Sender: FDA-Public Use
  Company Number: IT-ASTRAZENECA-2018SE89277

PATIENT
  Age: 80 Year
  Sex: Male

DRUGS (2)
  1. QUETIAPINE. [Suspect]
     Active Substance: QUETIAPINE
     Dosage: 50.0DF ONCE/SINGLE ADMINISTRATION
     Route: 048
     Dates: start: 20180610, end: 20180610
  2. PAROXETINE. [Suspect]
     Active Substance: PAROXETINE
     Dosage: 14.0DF ONCE/SINGLE ADMINISTRATION
     Route: 048
     Dates: start: 20180610, end: 20180610

REACTIONS (3)
  - Sopor [Recovered/Resolved]
  - Drug abuse [Recovered/Resolved]
  - Suicide attempt [Recovered/Resolved]

NARRATIVE: CASE EVENT DATE: 20180610
